FAERS Safety Report 6176777-4 (Version None)
Quarter: 2009Q2

REPORT INFORMATION
  Report Type: 
  Country: None (occurrence: None)
  Receive Date: 20090501
  Receipt Date: 20090424
  Transmission Date: 20091009
  Serious: Yes (Other)
  Sender: FDA-Public Use
  Company Number: US-ELI_LILLY_AND_COMPANY-US200904006033

PATIENT
  Sex: Male

DRUGS (3)
  1. HUMALOG [Suspect]
  2. CYMALON [Concomitant]
  3. LANTUS [Concomitant]

REACTIONS (3)
  - BLINDNESS [None]
  - BLOOD GLUCOSE INCREASED [None]
  - DIABETIC RETINOPATHY [None]
